FAERS Safety Report 4269590-6 (Version None)
Quarter: 2004Q1

REPORT INFORMATION
  Report Type: 
  Country: None (occurrence: None)
  Receive Date: 20040112
  Receipt Date: 20040112
  Transmission Date: 20041129
  Serious: Yes (Hospitalization)
  Sender: FDA-Public Use
  Company Number: None

PATIENT
  Age: 57 Year
  Sex: Male

DRUGS (12)
  1. LISINOPRIL [Suspect]
     Indication: HYPERTENSION
     Dosage: 20MG QD
     Dates: start: 20020518
  2. LEFLUNOMIDE [Suspect]
     Indication: RHEUMATOID ARTHRITIS
     Dosage: 50MG QD
     Dates: start: 20001001
  3. ROFECOXIB [Suspect]
     Indication: RHEUMATOID ARTHRITIS
     Dosage: 250MG QD
     Dates: start: 20030224
  4. INSULIN [Concomitant]
  5. ASPIRIN [Concomitant]
  6. METFORMIN [Concomitant]
  7. ZOCOR [Concomitant]
  8. METHOCARBAMOL [Concomitant]
  9. KCL TAB [Concomitant]
  10. PRAZOSIN HCL [Concomitant]
  11. HYDROXYZINE [Concomitant]
  12. CALCIUM CARBONATE [Concomitant]

REACTIONS (2)
  - HYPERKALAEMIA [None]
  - RENAL FAILURE ACUTE [None]
